FAERS Safety Report 6558725-8 (Version None)
Quarter: 2010Q1

REPORT INFORMATION
  Report Type: 
  Country: None (occurrence: None)
  Receive Date: 20100129
  Receipt Date: 20100122
  Transmission Date: 20100710
  Serious: Yes (Other)
  Sender: FDA-Public Use
  Company Number: FR-PFIZER INC-2010009019

PATIENT
  Age: 45 Year
  Sex: Male

DRUGS (10)
  1. TAHOR [Suspect]
     Indication: INFARCTION
     Dosage: 40 MG, UNK
     Route: 048
     Dates: start: 20091218, end: 20100106
  2. AOTAL [Concomitant]
     Dosage: 666 MG, 3X/DAY
     Route: 048
     Dates: start: 20091221
  3. ASPEGIC 1000 [Concomitant]
     Dosage: 1000 MG, 3X/DAY
     Route: 048
     Dates: start: 20091221
  4. PERINDOPRIL [Concomitant]
     Dosage: 5 MG, 1X/DAY
     Route: 048
  5. DEPAKOTE [Concomitant]
     Dosage: 500 MG, 3X/DAY
     Route: 048
  6. KREDEX [Concomitant]
     Dosage: 6.25 MG, 2X/DAY
     Route: 048
  7. BACLOFEN [Concomitant]
     Dosage: 90 MG, 1X/DAY
     Route: 048
  8. PLAVIX [Concomitant]
     Dosage: 75 MG, 1X/DAY
     Route: 048
  9. ESCITALOPRAM [Concomitant]
     Dosage: 10 MG, 1X/DAY
     Route: 048
  10. TERCIAN [Concomitant]
     Dosage: 25 MG, 2X/DAY
     Route: 048

REACTIONS (2)
  - PRURITUS [None]
  - RASH MACULO-PAPULAR [None]
